FAERS Safety Report 11716906 (Version 2)
Quarter: 2018Q3

REPORT INFORMATION
  Report Type: Spontaneous
  Country: US (occurrence: US)
  Receive Date: 20151109
  Receipt Date: 20180816
  Transmission Date: 20181010
  Serious: Yes (Hospitalization, Other)
  Sender: FDA-Public Use
  Company Number: US-SA-2015SA107441

PATIENT
  Age: 85 Year
  Sex: Male

DRUGS (3)
  1. LANTUS SOLOSTAR [Suspect]
     Active Substance: INSULIN GLARGINE
     Indication: TYPE 1 DIABETES MELLITUS
     Dosage: 9 UNITS/AM, 8UNITS/PM
     Route: 065
  2. LANTUS SOLOSTAR [Suspect]
     Active Substance: INSULIN GLARGINE
     Dosage: UNK
     Route: 065
  3. NOVOLOG [Concomitant]
     Active Substance: INSULIN ASPART
     Dosage: UNK UNK,QID

REACTIONS (5)
  - Blood glucose decreased [Unknown]
  - Coma [Recovered/Resolved]
  - Cerebrovascular accident [Recovered/Resolved]
  - Cardiac disorder [Recovered/Resolved]
  - Hyperglycaemia [Recovered/Resolved]
